FAERS Safety Report 8470294-4 (Version None)
Quarter: 2012Q2

REPORT INFORMATION
  Report Type: 
  Country: None (occurrence: None)
  Receive Date: 20120627
  Receipt Date: 20120613
  Transmission Date: 20120825
  Serious: Yes (Other)
  Sender: FDA-Public Use
  Company Number: FR-CELGENEUS-056-21880-11041410

PATIENT
  Sex: Male

DRUGS (9)
  1. PENTOXIFYLLINE [Concomitant]
     Route: 065
  2. REVLIMID [Suspect]
     Dosage: 25 MILLIGRAM
     Route: 048
     Dates: start: 20070326, end: 20070513
  3. PANTOPRAZOLE SODIUM [Concomitant]
     Route: 065
  4. PROPRANOLOL [Concomitant]
     Route: 065
  5. ZOLPIDEM [Concomitant]
     Route: 065
  6. KALIONID [Concomitant]
     Route: 065
  7. MAG 2 [Concomitant]
     Route: 065
  8. REVLIMID [Suspect]
     Dosage: 10 MILLIGRAM
     Route: 048
     Dates: start: 20070531, end: 20110101
  9. LOVENOX [Concomitant]
     Route: 058

REACTIONS (2)
  - HYPOPHARYNGEAL CANCER [None]
  - LUNG SQUAMOUS CELL CARCINOMA STAGE UNSPECIFIED [None]
